FAERS Safety Report 9692723 (Version 1)
Quarter: 2013Q4

REPORT INFORMATION
  Report Type: Spontaneous
  Country: US (occurrence: US)
  Receive Date: 20131118
  Receipt Date: 20131118
  Transmission Date: 20140711
  Serious: Yes (Other)
  Sender: FDA-Public Use
  Company Number: PHEH2013US023884

PATIENT
  Sex: Male

DRUGS (3)
  1. DIOVAN HCT [Suspect]
     Indication: HYPERTENSION
     Dosage: 1 DF, DAILY (160 MG VALS,12.5 MG HYDR)
     Route: 048
  2. ARICEPT [Concomitant]
     Indication: DEMENTIA
  3. NAMENDA [Concomitant]
     Indication: DEMENTIA

REACTIONS (3)
  - Mental disorder due to a general medical condition [Unknown]
  - General physical health deterioration [Unknown]
  - Amnesia [Unknown]
